FAERS Safety Report 11020181 (Version 1)
Quarter: 2015Q2

REPORT INFORMATION
  Report Type: Spontaneous
  Country: GB (occurrence: GB)
  Receive Date: 20150413
  Receipt Date: 20150413
  Transmission Date: 20150821
  Serious: Yes (Other)
  Sender: FDA-Public Use
  Company Number: GB-SYMPLMED PHARMACEUTICALS-2015SYM00068

PATIENT
  Age: 69 Year
  Sex: Male
  Weight: 99.79 kg

DRUGS (4)
  1. ACEON [Suspect]
     Active Substance: PERINDOPRIL ERBUMINE
     Dosage: 4 MG, UNK
  2. ACEON [Suspect]
     Active Substance: PERINDOPRIL ERBUMINE
     Indication: PRODUCT USED FOR UNKNOWN INDICATION
     Dosage: 2 MG, UNK
     Dates: start: 20150106
  3. ATORVASTATIN CALCIUM. [Concomitant]
     Active Substance: ATORVASTATIN CALCIUM
     Indication: PRODUCT USED FOR UNKNOWN INDICATION
     Dosage: UNK
     Dates: start: 20141021
  4. LEVOTHYROXINE SODIUM. [Concomitant]
     Active Substance: LEVOTHYROXINE SODIUM
     Indication: PRODUCT USED FOR UNKNOWN INDICATION
     Dosage: UNK
     Dates: start: 20141021

REACTIONS (1)
  - Urethral pain [Recovered/Resolved]

NARRATIVE: CASE EVENT DATE: 20150210
